FAERS Safety Report 12643326 (Version 2)
Quarter: 2016Q3

REPORT INFORMATION
  Report Type: Spontaneous
  Country: US (occurrence: US)
  Receive Date: 20160811
  Receipt Date: 20160819
  Transmission Date: 20161109
  Serious: Yes (Hospitalization)
  Sender: FDA-Public Use
  Company Number: US-ASTRAZENECA-2016SE85364

PATIENT
  Age: 755 Month
  Sex: Male
  Weight: 90.7 kg

DRUGS (4)
  1. ASPIRIN. [Concomitant]
     Active Substance: ASPIRIN
  2. OTHER [Concomitant]
     Active Substance: UNSPECIFIED INGREDIENT
  3. BRILINTA [Suspect]
     Active Substance: TICAGRELOR
     Indication: ACUTE CORONARY SYNDROME
     Route: 048
     Dates: start: 201606
  4. BRILINTA [Suspect]
     Active Substance: TICAGRELOR
     Indication: MYOCARDIAL INFARCTION
     Route: 048
     Dates: start: 201606

REACTIONS (3)
  - Cerebrovascular accident [Unknown]
  - Cardiac disorder [Unknown]
  - Drug dose omission [Unknown]

NARRATIVE: CASE EVENT DATE: 201606
